FAERS Safety Report 6634959-9 (Version None)
Quarter: 2010Q1

REPORT INFORMATION
  Report Type: 
  Country: None (occurrence: None)
  Receive Date: 20100315
  Receipt Date: 20100308
  Transmission Date: 20100710
  Serious: Yes (Death)
  Sender: FDA-Public Use
  Company Number: US-BRISTOL-MYERS SQUIBB COMPANY-14979702

PATIENT
  Age: 64 Year
  Sex: Male

DRUGS (11)
  1. COUMADIN [Suspect]
     Indication: CEREBROVASCULAR ACCIDENT
     Dosage: 1DF- MONDAY TO SATURDAY 6MG; SUNDAY-7MG
     Dates: start: 20070303
  2. COUMADIN [Suspect]
     Indication: ANGIOPLASTY
     Dosage: 1DF- MONDAY TO SATURDAY 6MG; SUNDAY-7MG
     Dates: start: 20070303
  3. COUMADIN [Suspect]
     Indication: CORONARY ARTERY BYPASS
     Dosage: 1DF- MONDAY TO SATURDAY 6MG; SUNDAY-7MG
     Dates: start: 20070303
  4. NEXIUM [Concomitant]
  5. MICARDIS [Concomitant]
     Dosage: 1 DF=1/2;STRENGTH: 80 MG
  6. FUROSEMIDE [Concomitant]
  7. ZOLPIDEM [Concomitant]
  8. LYRICA [Concomitant]
  9. LEXAPRO [Concomitant]
  10. KLOR-CON [Concomitant]
  11. BYSTOLIC [Concomitant]
     Dosage: 1 DF=1/2;STRENGTH: 10 MG

REACTIONS (1)
  - CARDIAC FAILURE CONGESTIVE [None]
